FAERS Safety Report 7815160-X (Version None)
Quarter: 2011Q4

REPORT INFORMATION
  Report Type: 
  Country: None (occurrence: None)
  Receive Date: 20111014
  Receipt Date: 20111004
  Transmission Date: 20120403
  Serious: Yes (Hospitalization)
  Sender: FDA-Public Use
  Company Number: JP-TYCO HEALTHCARE/MALLINCKRODT-T201102017

PATIENT
  Sex: Female

DRUGS (1)
  1. METHADONE HCL [Suspect]
     Indication: CANCER PAIN
     Dosage: 20 MG, TID
     Route: 048
     Dates: start: 20110202

REACTIONS (2)
  - METASTASES TO BONE [None]
  - PAIN [None]
